FAERS Safety Report 24243985 (Version 1)
Quarter: 2024Q3

REPORT INFORMATION
  Report Type: Spontaneous
  Country: US (occurrence: None)
  Receive Date: 20240823
  Receipt Date: 20240823
  Transmission Date: 20241017
  Serious: Yes (Other)
  Sender: EMMAUS LIFE SCIENCES
  Company Number: US-Emmaus Medical, Inc.-EMM202401-000038

PATIENT
  Age: 60 Year
  Sex: Female

DRUGS (2)
  1. ENDARI [Suspect]
     Active Substance: GLUTAMINE
     Indication: Sickle cell disease
     Dosage: 15 G
     Route: 048
     Dates: start: 20231215
  2. OXBRYTA [Concomitant]
     Active Substance: VOXELOTOR
     Indication: Product used for unknown indication
     Dosage: UNKNOWN
     Route: 065

REACTIONS (7)
  - Sickle cell anaemia with crisis [Unknown]
  - Arthritis [Unknown]
  - Alopecia [Unknown]
  - Headache [Not Recovered/Not Resolved]
  - Pain [Unknown]
  - Drug ineffective [Unknown]
  - Product dose omission issue [Unknown]

NARRATIVE: CASE EVENT DATE: 20230101
